FAERS Safety Report 15276110 (Version 1)
Quarter: 2018Q3

REPORT INFORMATION
  Report Type: Spontaneous
  Country: NL (occurrence: NL)
  Receive Date: 20180814
  Receipt Date: 20180814
  Transmission Date: 20181010
  Serious: Yes (Other)
  Sender: FDA-Public Use
  Company Number: PHHY2018NL069783

PATIENT
  Age: 68 Year
  Sex: Female
  Weight: 97 kg

DRUGS (4)
  1. PAMIDRONIC ACID [Concomitant]
     Active Substance: PAMIDRONIC ACID
     Indication: PRODUCT USED FOR UNKNOWN INDICATION
     Dosage: 30 MG, Q4W (DOSAGE FORM: UNSPECIFIED)
     Route: 042
  2. VELCADE [Suspect]
     Active Substance: BORTEZOMIB
     Indication: PLASMA CELL MYELOMA
     Dosage: 1 DF, QW (DOSAGE FORM: LYOPHILIZED POWDER)
     Route: 058
     Dates: start: 20170814, end: 20171123
  3. PREDNISONE. [Suspect]
     Active Substance: PREDNISONE
     Indication: PLASMA CELL MYELOMA
     Dosage: 100 MG, Q96H  (DOSAGE FORM: UNSPECIFIED)
     Route: 065
     Dates: start: 20170814
  4. MELPHALAN. [Suspect]
     Active Substance: MELPHALAN
     Indication: PLASMA CELL MYELOMA
     Dosage: 12 MG, Q96H (DOSAGE FORM: UNSPECIFIED)
     Route: 065
     Dates: start: 20170814

REACTIONS (1)
  - Blepharitis [Recovering/Resolving]

NARRATIVE: CASE EVENT DATE: 201711
